FAERS Safety Report 19031605 (Version 1)
Quarter: 2021Q1

REPORT INFORMATION
  Report Type: Spontaneous
  Country: GB (occurrence: GB)
  Receive Date: 20210319
  Receipt Date: 20210319
  Transmission Date: 20210420
  Serious: Yes (Other)
  Sender: FDA-Public Use
  Company Number: GB-ALNYLAM PHARMACEUTICALS, INC.-ALN-2021-000394

PATIENT

DRUGS (1)
  1. ONPATTRO [Suspect]
     Active Substance: PATISIRAN SODIUM
     Indication: HEREDITARY NEUROPATHIC AMYLOIDOSIS
     Dosage: 18?19 MILLIGRAM, Q3W
     Route: 042
     Dates: start: 20190103

REACTIONS (4)
  - COVID-19 [Unknown]
  - Food refusal [Unknown]
  - Malaise [Unknown]
  - Condition aggravated [Unknown]
